FAERS Safety Report 8653880 (Version 3)
Quarter: 2012Q4

REPORT INFORMATION
  Report Type: Report from Study
  Country: US (occurrence: US)
  Receive Date: 20120709
  Receipt Date: 20121226
  Transmission Date: 20130627
  Serious: Yes (Other)
  Sender: FDA-Public Use
  Company Number: US-JNJFOC-20120614083

PATIENT
  Age: 52 None
  Sex: Female
  Weight: 51.71 kg

DRUGS (40)
  1. REMICADE [Suspect]
     Indication: ARTHRITIS
     Route: 042
     Dates: start: 201206
  2. REMICADE [Suspect]
     Indication: ARTHRITIS
     Dosage: after initial infusions
     Route: 042
  3. REMICADE [Suspect]
     Indication: ARTHRITIS
     Route: 042
     Dates: start: 2011, end: 2012
  4. REMICADE [Suspect]
     Indication: COLITIS
     Dosage: after initial infusions
     Route: 042
  5. REMICADE [Suspect]
     Indication: COLITIS
     Route: 042
     Dates: start: 201206
  6. REMICADE [Suspect]
     Indication: COLITIS
     Route: 042
     Dates: start: 2011, end: 2012
  7. REMICADE [Suspect]
     Indication: RHEUMATOID ARTHRITIS
     Route: 042
     Dates: start: 2011, end: 2012
  8. REMICADE [Suspect]
     Indication: RHEUMATOID ARTHRITIS
     Dosage: after initial infusions
     Route: 042
  9. REMICADE [Suspect]
     Indication: RHEUMATOID ARTHRITIS
     Route: 042
     Dates: start: 201206
  10. ATENOLOL [Concomitant]
     Indication: MIGRAINE
     Dosage: 1 tablet each morning
     Route: 065
  11. ALLEGRA [Concomitant]
     Indication: MULTIPLE ALLERGIES
     Dosage: 1 in morning
     Route: 065
  12. SULFAZINE [Concomitant]
     Indication: DIVERTICULUM
     Dosage: 2 tablets 3 times a day
     Route: 048
  13. SULFAZINE [Concomitant]
     Indication: INFLAMMATORY BOWEL DISEASE
     Dosage: 2 tablets 3 times a day
     Route: 048
  14. SULFAZINE [Concomitant]
     Indication: RHEUMATOID ARTHRITIS
     Dosage: 2 tablets 3 times a day
     Route: 048
  15. SYNTHROID [Concomitant]
     Indication: GOITRE
     Dosage: 1 in morning
     Route: 065
  16. BENTYL [Concomitant]
     Indication: ABDOMINAL PAIN
     Dosage: 1 to 2 tablets every 4 hours or as necessary in case of abdominal pain
     Route: 048
  17. NEXIUM [Concomitant]
     Indication: GASTROOESOPHAGEAL REFLUX DISEASE
     Route: 065
  18. DIVALPROEX [Concomitant]
     Indication: MIGRAINE
     Route: 065
  19. NORTRIPTYLINE [Concomitant]
     Indication: MIGRAINE
     Route: 065
  20. VITAMINS B COMPLEX [Concomitant]
     Indication: FATIGUE
     Dosage: 1 in morning: to decrease fatigue from Rheumatoid arthritis
     Route: 065
  21. CALCIUM [Concomitant]
     Indication: OSTEOPOROSIS
     Dosage: 1 with breakfast and 1 with dinner
     Route: 065
  22. FOSAMAX [Concomitant]
     Indication: OSTEOPOROSIS
     Dosage: 1 tablet a week 30 minutes before breakfast
     Route: 048
  23. MULTIVITAMINS WITH IRON [Concomitant]
     Dosage: 1 in morning
     Route: 065
  24. PHENERGAN [Concomitant]
     Indication: ABDOMINAL PAIN
     Route: 065
  25. PHENERGAN [Concomitant]
     Indication: NAUSEA
     Route: 065
  26. PHENERGAN [Concomitant]
     Indication: MIGRAINE
     Route: 065
  27. TORADOL [Concomitant]
     Indication: ARTHRALGIA
     Route: 065
  28. ALBUTEROL [Concomitant]
     Indication: ASTHMA
     Route: 065
  29. FLAXSEED OIL [Concomitant]
     Indication: EYE DISORDER
     Route: 065
  30. VITAMIN D3 [Concomitant]
     Indication: ARTHRITIS
     Dosage: 1 in morning
     Route: 065
  31. POTASSIUM [Concomitant]
     Route: 065
  32. DILAUDID [Concomitant]
     Indication: BACK PAIN
     Dosage: or as anecessary if pain occurs
     Route: 065
  33. PREDNISONE [Concomitant]
     Indication: ARTHRITIS
     Dosage: 3 and final round, have increased it twice before due to pain increasing when drop to 10 mg
     Route: 065
  34. PREDNISONE [Concomitant]
     Indication: COLITIS
     Dosage: 3 and final round, have increased it twice before due to pain increasing when drop to 10 mg
     Route: 065
  35. ALL OTHER THERAPEUTICS [Concomitant]
     Indication: ANAEMIA
     Dosage: 1 cap once a day
     Route: 065
  36. NALFON [Concomitant]
     Indication: ARTHRITIS
     Dosage: 1 in morning
     Route: 065
  37. AMBIEN [Concomitant]
     Indication: INSOMNIA
     Dosage: or as necessary
     Route: 065
  38. CIPRO [Concomitant]
     Indication: CYSTITIS
     Dosage: 1 in morning
     Route: 065
  39. PHENAZOPYRIDINE [Concomitant]
     Indication: DYSURIA
     Dosage: 1 to 2 tablets 3 times a day or as necessary when pain occurs
     Route: 048
  40. IMODIUM [Concomitant]
     Indication: DIARRHOEA
     Dosage: as directed
     Route: 065

REACTIONS (6)
  - Migraine [Recovered/Resolved]
  - Anaemia [Not Recovered/Not Resolved]
  - Colitis [Not Recovered/Not Resolved]
  - Blood potassium decreased [Not Recovered/Not Resolved]
  - Drug ineffective [Not Recovered/Not Resolved]
  - Limb discomfort [Unknown]
